FAERS Safety Report 7631612-X (Version None)
Quarter: 2011Q3

REPORT INFORMATION
  Report Type: 
  Country: None (occurrence: None)
  Receive Date: 20110725
  Receipt Date: 20110124
  Transmission Date: 20111222
  Serious: Yes (Other)
  Sender: FDA-Public Use
  Company Number: US-BRISTOL-MYERS SQUIBB COMPANY-15501000

PATIENT
  Age: 81 Year
  Sex: Female
  Weight: 72 kg

DRUGS (5)
  1. PREDNISONE [Suspect]
  2. SYNTHROID [Concomitant]
  3. DILTIAZEM HCL [Concomitant]
  4. COUMADIN [Suspect]
     Indication: ATRIAL FIBRILLATION
     Dosage: ALSO TAKEN AS CONMED 4MG MON,THU 2MG OD REST OF THE WK
     Dates: start: 20080701
  5. SPIRONOLACTONE [Concomitant]

REACTIONS (2)
  - INTERNATIONAL NORMALISED RATIO DECREASED [None]
  - WEIGHT INCREASED [None]
